FAERS Safety Report 11943599 (Version 1)
Quarter: 2016Q1

REPORT INFORMATION
  Report Type: Spontaneous
  Country: US (occurrence: US)
  Receive Date: 20160125
  Receipt Date: 20160125
  Transmission Date: 20160526
  Serious: No
  Sender: FDA-Public Use
  Company Number: US-UNITED THERAPEUTICS-UNT-2015-012222

PATIENT
  Age: 51 Year
  Sex: Female
  Weight: 114.74 kg

DRUGS (2)
  1. REMODULIN [Suspect]
     Active Substance: TREPROSTINIL
     Dosage: UNK
     Route: 058
  2. REMODULIN [Suspect]
     Active Substance: TREPROSTINIL
     Indication: PULMONARY ARTERIAL HYPERTENSION
     Dosage: 0.0815 ?G/KG/MIN, CONTINUING
     Route: 058
     Dates: start: 20090112

REACTIONS (10)
  - Infusion site oedema [Unknown]
  - Infusion site reaction [Unknown]
  - Food allergy [Unknown]
  - Infusion site infection [Unknown]
  - Infusion site discharge [Unknown]
  - Infusion site erythema [Unknown]
  - Chills [Unknown]
  - Infusion site abscess [Unknown]
  - Feeling abnormal [Unknown]
  - Influenza [Unknown]

NARRATIVE: CASE EVENT DATE: 201509
